FAERS Safety Report 7383385-6 (Version None)
Quarter: 2011Q1

REPORT INFORMATION
  Report Type: 
  Country: None (occurrence: None)
  Receive Date: 20110330
  Receipt Date: 20101005
  Transmission Date: 20110831
  Serious: Yes (Hospitalization, Other)
  Sender: FDA-Public Use
  Company Number: US-BAYER-201034352NA

PATIENT
  Sex: Female
  Weight: 54.875 kg

DRUGS (11)
  1. YAZ [Suspect]
     Indication: CONTRACEPTION
     Route: 048
     Dates: start: 20070501, end: 20091101
  2. YAZ [Suspect]
     Indication: GENITAL HAEMORRHAGE
  3. NEXIUM [Concomitant]
  4. PULMICORT [Concomitant]
     Dosage: 180 UNK, UNK
  5. FLUCONAZOLE [Concomitant]
     Dosage: 150 MG, UNK
  6. BETAMETHASONE [Concomitant]
  7. SINGULAIR [Concomitant]
     Dosage: 10 MG, QD
  8. PREVACID [Concomitant]
  9. ZYRTEC [Concomitant]
     Dosage: 10 MG, QD
     Route: 048
  10. OPTIVAR [Concomitant]
  11. YAZ [Suspect]
     Indication: UTERINE SPASM

REACTIONS (4)
  - CHOLECYSTITIS CHRONIC [None]
  - GALLBLADDER DISORDER [None]
  - BILIARY COLIC [None]
  - CHOLELITHIASIS [None]
